FAERS Safety Report 9603137 (Version 6)
Quarter: 2014Q2

REPORT INFORMATION
  Report Type: Spontaneous
  Country: US (occurrence: US)
  Receive Date: 20131007
  Receipt Date: 20140623
  Transmission Date: 20141212
  Serious: Yes (Hospitalization, Other)
  Sender: FDA-Public Use
  Company Number: US-009507513-1310USA000330

PATIENT
  Sex: Female

DRUGS (7)
  1. FOSAMAX [Suspect]
     Indication: OSTEOPENIA
     Dosage: 70 MG, WEEKLY
     Route: 048
     Dates: start: 2007
  2. ALENDRONATE SODIUM [Suspect]
     Indication: OSTEOPENIA
     Dosage: 70 MG, WEEKLY
     Route: 048
     Dates: end: 201110
  3. ALENDRONATE SODIUM [Suspect]
     Dosage: 70 MG, QW
     Route: 048
     Dates: start: 20080916, end: 20110106
  4. CALCIUM (UNSPECIFIED) (+) VITAMIN D (UNSPECIFIED) [Concomitant]
     Dosage: 600 MG/400 IU BID
     Dates: start: 2000
  5. VITAMIN D (UNSPECIFIED) [Concomitant]
     Dosage: 2000 IU DAILY
     Dates: start: 2000
  6. PROZAC [Concomitant]
     Indication: DEPRESSION
     Dosage: 40 MG, QD
     Route: 048
     Dates: start: 200512
  7. PROZAC [Concomitant]
     Indication: ANXIETY

REACTIONS (22)
  - Femur fracture [Unknown]
  - Intramedullary rod insertion [Unknown]
  - Metastatic neoplasm [Unknown]
  - Hyponatraemia [Unknown]
  - Blood potassium decreased [Unknown]
  - Fall [Unknown]
  - Transfusion [Unknown]
  - Depression [Not Recovered/Not Resolved]
  - Anxiety [Not Recovered/Not Resolved]
  - Fear of falling [Not Recovered/Not Resolved]
  - Anaemia postoperative [Unknown]
  - Pain [Unknown]
  - Bronchitis [Unknown]
  - Intervertebral disc degeneration [Unknown]
  - Intervertebral disc protrusion [Unknown]
  - Spinal column stenosis [Unknown]
  - Breast lump removal [Unknown]
  - Osteoarthritis [Unknown]
  - Type 2 diabetes mellitus [Unknown]
  - Tooth fracture [Unknown]
  - Lymphadenectomy [Unknown]
  - Dyspepsia [Unknown]
